FAERS Safety Report 5257833-1 (Version None)
Quarter: 2007Q1

REPORT INFORMATION
  Report Type: 
  Country: None (occurrence: None)
  Receive Date: 20061220
  Receipt Date: 20060920
  Transmission Date: 20070707
  Serious: No
  Sender: FDA-Public Use
  Company Number: 2006RL000340

PATIENT
  Age: 52 Year
  Sex: Female

DRUGS (3)
  1. OMACOR [Suspect]
     Indication: DRUG USE FOR UNKNOWN INDICATION
     Dosage: 4 GM; QD; PO
     Route: 048
     Dates: start: 20060901
  2. NIASPAN [Concomitant]
  3. ADVIL [Concomitant]

REACTIONS (1)
  - FATIGUE [None]
